FAERS Safety Report 8193470-7 (Version None)
Quarter: 2012Q1

REPORT INFORMATION
  Report Type: 
  Country: None (occurrence: None)
  Receive Date: 20120308
  Receipt Date: 20120306
  Transmission Date: 20120608
  Serious: Yes (Hospitalization, Other)
  Sender: FDA-Public Use
  Company Number: US-PFIZER INC-2012060919

PATIENT
  Sex: Female
  Weight: 73.016 kg

DRUGS (13)
  1. CALCIUM 600+D [Concomitant]
     Dosage: UNK
  2. LISINOPRIL [Concomitant]
     Dosage: 2.5 MG, DAILY
  3. TRICOR [Concomitant]
     Indication: BLOOD CHOLESTEROL INCREASED
     Dosage: 145 MG, DAILY
  4. CHANTIX [Suspect]
     Indication: SMOKING CESSATION THERAPY
     Dosage: UNK
  5. NAPROXEN (ALEVE) [Concomitant]
     Indication: ARTHRITIS
     Dosage: 220 MG, DAILY
  6. VITAMIN B-12 [Concomitant]
     Dosage: UNK
  7. ASPIRIN [Concomitant]
     Dosage: 81 MG, DAILY
  8. EFFEXOR [Concomitant]
     Indication: ANXIETY
     Dosage: 150 MG, DAILY
  9. NITROGLYCERIN [Concomitant]
     Dosage: UNK, EVERY 12 HOURS
  10. CRESTOR [Concomitant]
     Indication: BLOOD CHOLESTEROL INCREASED
     Dosage: 20 MG, DAILY
  11. TOPROL-XL [Concomitant]
     Dosage: 100 MG, DAILY
  12. NAPROXEN (ALEVE) [Concomitant]
     Indication: BACK PAIN
  13. SYNTHROID [Concomitant]
     Indication: THYROID DISORDER
     Dosage: 100 UG, DAILY

REACTIONS (2)
  - CATARACT [None]
  - BREAST CANCER FEMALE [None]
